FAERS Safety Report 11607305 (Version 1)
Quarter: 2015Q4

REPORT INFORMATION
  Report Type: Spontaneous
  Country: US (occurrence: US)
  Receive Date: 20151007
  Receipt Date: 20151007
  Transmission Date: 20160304
  Serious: No
  Sender: FDA-Public Use
  Company Number: US-PFIZER INC-2015332154

PATIENT
  Age: 50 Year
  Sex: Female
  Weight: 58.41 kg

DRUGS (1)
  1. BOSULIF [Suspect]
     Active Substance: BOSUTINIB MONOHYDRATE
     Indication: NEOPLASM MALIGNANT
     Dosage: 500 MG, 1X/DAY
     Dates: start: 2015

REACTIONS (1)
  - Gastrointestinal disorder [Unknown]
